FAERS Safety Report 7536533-9 (Version None)
Quarter: 2011Q2

REPORT INFORMATION
  Report Type: 
  Country: None (occurrence: None)
  Receive Date: 20110608
  Receipt Date: 20110608
  Transmission Date: 20111010
  Serious: No
  Sender: FDA-Public Use
  Company Number: None

PATIENT
  Age: 62 Year
  Sex: Female
  Weight: 65.8 kg

DRUGS (2)
  1. OXCARBAZEPINE [Suspect]
     Indication: ACUTE PSYCHOSIS
     Dosage: 600 MG BID PO
     Route: 048
     Dates: start: 20110520
  2. OLANZAPINE [Suspect]
     Indication: ACUTE PSYCHOSIS

REACTIONS (4)
  - CONFUSIONAL STATE [None]
  - OCULOGYRIC CRISIS [None]
  - DYSTONIA [None]
  - AGITATION [None]
